FAERS Safety Report 22260951 (Version 1)
Quarter: 2023Q2

REPORT INFORMATION
  Report Type: Spontaneous
  Country: CH (occurrence: CH)
  Receive Date: 20230427
  Receipt Date: 20230427
  Transmission Date: 20230722
  Serious: Yes (Hospitalization, Other)
  Sender: FDA-Public Use
  Company Number: None

PATIENT
  Age: 92 Year
  Sex: Male

DRUGS (15)
  1. LINAGLIPTIN [Suspect]
     Active Substance: LINAGLIPTIN
     Indication: Diabetes mellitus
     Route: 048
     Dates: start: 20230317, end: 20230330
  2. VISIPAQUE [Suspect]
     Active Substance: IODIXANOL
     Indication: Angiogram
     Dosage: IN TOTAL
     Route: 041
     Dates: start: 20230328, end: 20230328
  3. BUPRENORPHINE HYDROCHLORIDE [Suspect]
     Active Substance: BUPRENORPHINE HYDROCHLORIDE
     Indication: Product used for unknown indication
     Dosage: AS NECESSARY
     Route: 060
     Dates: start: 20230310, end: 20230330
  4. DOTAREM [Suspect]
     Active Substance: GADOTERATE MEGLUMINE
     Indication: Magnetic resonance imaging
     Dosage: IN TOTAL
     Route: 041
     Dates: start: 20230314, end: 20230314
  5. ENOXAPARIN SODIUM [Suspect]
     Active Substance: ENOXAPARIN SODIUM
     Indication: Atrial fibrillation
     Route: 058
     Dates: start: 20230309, end: 20230314
  6. CALCIPARINE [Suspect]
     Active Substance: HEPARIN CALCIUM
     Indication: Atrial fibrillation
     Route: 058
     Dates: start: 20230301, end: 20230305
  7. CALCIPARINE [Suspect]
     Active Substance: HEPARIN CALCIUM
     Route: 058
     Dates: start: 20230317, end: 20230323
  8. HEPARIN [Suspect]
     Active Substance: HEPARIN SODIUM
     Indication: Venous thrombosis limb
     Route: 041
     Dates: start: 20230324, end: 20230331
  9. ATORVASTATIN [Concomitant]
     Active Substance: ATORVASTATIN
     Indication: Product used for unknown indication
  10. NEXIUM [Concomitant]
     Active Substance: ESOMEPRAZOLE MAGNESIUM
     Indication: Product used for unknown indication
  11. AMLODIPINE BESYLATE [Concomitant]
     Active Substance: AMLODIPINE BESYLATE
     Indication: Product used for unknown indication
  12. MOXONIDINE [Concomitant]
     Active Substance: MOXONIDINE
     Indication: Product used for unknown indication
  13. ESCITALOPRAM [Concomitant]
     Active Substance: ESCITALOPRAM OXALATE
     Indication: Product used for unknown indication
  14. DAFALGAN [Concomitant]
     Active Substance: ACETAMINOPHEN
     Indication: Product used for unknown indication
  15. ASPIRIN [Concomitant]
     Active Substance: ASPIRIN
     Indication: Product used for unknown indication

REACTIONS (2)
  - Eosinophilia [Recovered/Resolved]
  - Rash [Recovered/Resolved]

NARRATIVE: CASE EVENT DATE: 20230301
